FAERS Safety Report 16725075 (Version 3)
Quarter: 2019Q3

REPORT INFORMATION
  Report Type: Spontaneous
  Country: US (occurrence: US)
  Receive Date: 20190821
  Receipt Date: 20190906
  Transmission Date: 20191005
  Serious: No
  Sender: FDA-Public Use
  Company Number: US-PFIZER INC-2019359073

PATIENT
  Age: 56 Year
  Sex: Female
  Weight: 52.15 kg

DRUGS (1)
  1. LYRICA [Suspect]
     Active Substance: PREGABALIN
     Dosage: 3 DF, 1X/DAY (50 MG TAKE 3 CAPSULES AT BEDTIME)
     Route: 048

REACTIONS (1)
  - Malaise [Unknown]
